FAERS Safety Report 4589697-3 (Version None)
Quarter: 2005Q1

REPORT INFORMATION
  Report Type: 
  Country: None (occurrence: None)
  Receive Date: 20050223
  Receipt Date: 20050120
  Transmission Date: 20050727
  Serious: Yes (Life-Threatening, Hospitalization, Other)
  Sender: FDA-Public Use
  Company Number: GB-BRISTOL-MYERS SQUIBB COMPANY-12832473

PATIENT
  Age: 26 Year
  Sex: Female

DRUGS (10)
  1. ABILIFY [Suspect]
     Indication: PSYCHOTIC DISORDER
     Route: 048
     Dates: start: 20041230, end: 20050105
  2. ABILIFY [Suspect]
     Indication: PARANOIA
     Route: 048
     Dates: start: 20041230, end: 20050105
  3. ABILIFY [Suspect]
     Indication: SCHIZOPHRENIA
     Route: 048
     Dates: start: 20041230, end: 20050105
  4. VENLAFAXINE HCL [Concomitant]
     Indication: DEPRESSION
     Route: 048
     Dates: start: 20041005
  5. PROPRANOLOL [Concomitant]
     Indication: DEPRESSION
  6. DICLOFENAC [Concomitant]
     Indication: NECK PAIN
     Route: 048
  7. LANSOPRAZOLE [Concomitant]
     Route: 048
  8. ZOPICLONE [Concomitant]
     Indication: ANXIETY
     Route: 048
  9. BUSPIRONE [Concomitant]
     Indication: ANXIETY
  10. REMEDEINE [Concomitant]
     Indication: NECK PAIN

REACTIONS (3)
  - CONVULSION [None]
  - DYSTONIA [None]
  - HEADACHE [None]
